FAERS Safety Report 8000953-9 (Version None)
Quarter: 2011Q4

REPORT INFORMATION
  Report Type: 
  Country: None (occurrence: None)
  Receive Date: 20111222
  Receipt Date: 20111219
  Transmission Date: 20120403
  Serious: Yes (Hospitalization, Other)
  Sender: FDA-Public Use
  Company Number: US-AMGEN-USASP2011067646

PATIENT
  Age: 53 Year
  Sex: Female

DRUGS (1)
  1. ENBREL [Suspect]
     Indication: RHEUMATOID ARTHRITIS
     Dosage: 50 MG, QWK
     Dates: start: 20071201

REACTIONS (8)
  - INFECTION [None]
  - CEREBROVASCULAR ACCIDENT [None]
  - MYALGIA [None]
  - MYOCARDIAL INFARCTION [None]
  - DRUG INTERACTION [None]
  - HOSPITALISATION [None]
  - PYREXIA [None]
  - RASH GENERALISED [None]
